FAERS Safety Report 13270673 (Version 1)
Quarter: 2017Q1

REPORT INFORMATION
  Report Type: Other
  Country: GB (occurrence: US)
  Receive Date: 20170225
  Receipt Date: 20170225
  Transmission Date: 20170428
  Serious: Yes (Hospitalization, Other)
  Sender: FDA-Public Use
  Company Number: US-INTERNATIONAL MEDICATION SYSTEMS, LIMITED-1063594

PATIENT
  Age: 61 Year
  Sex: Male

DRUGS (10)
  1. MEPIVACAINE 1.5% (BOLUS) [Suspect]
     Active Substance: MEPIVACAINE HYDROCHLORIDE
     Indication: NERVE BLOCK
  2. ROPIVACAINE HCL [Suspect]
     Active Substance: ROPIVACAINE HYDROCHLORIDE
  3. BUPIVACAINE HCL [Suspect]
     Active Substance: BUPIVACAINE HYDROCHLORIDE
  4. EPINEPHRINE. [Concomitant]
     Active Substance: EPINEPHRINE
  5. MEPIVACAINE 2% [Suspect]
     Active Substance: MEPIVACAINE HYDROCHLORIDE
  6. EPINEPHRINE. [Concomitant]
     Active Substance: EPINEPHRINE
  7. MORPHINE SULFATE. [Concomitant]
     Active Substance: MORPHINE SULFATE
  8. KETOROLAC [Concomitant]
     Active Substance: KETOROLAC\KETOROLAC TROMETHAMINE
  9. LIDOCAINE 1% (SKIN INFILTRATION) [Suspect]
     Active Substance: LIDOCAINE
  10. CHLORHEXIDINE [Concomitant]
     Active Substance: CHLORHEXIDINE

REACTIONS (1)
  - Myositis [Not Recovered/Not Resolved]
